FAERS Safety Report 15324104 (Version 1)
Quarter: 2018Q3

REPORT INFORMATION
  Report Type: Spontaneous
  Country: DE (occurrence: DE)
  Receive Date: 20180828
  Receipt Date: 20180828
  Transmission Date: 20181010
  Serious: Yes (Hospitalization)
  Sender: FDA-Public Use
  Company Number: DE-TEVA-2018-DE-947860

PATIENT
  Age: 35 Year
  Sex: Female

DRUGS (3)
  1. RISPERIDONE. [Suspect]
     Active Substance: RISPERIDONE
     Dosage: 4 MILLIGRAM DAILY;
     Route: 048
     Dates: start: 20180103, end: 20180122
  2. RISPERIDONE. [Suspect]
     Active Substance: RISPERIDONE
     Dosage: 3 MILLIGRAM DAILY;
     Route: 048
     Dates: start: 20171222, end: 20180102
  3. RISPERIDONE. [Suspect]
     Active Substance: RISPERIDONE
     Dosage: 3 MILLIGRAM DAILY;
     Route: 048
     Dates: start: 20180123

REACTIONS (2)
  - Blood prolactin increased [Unknown]
  - Subileus [Recovered/Resolved]

NARRATIVE: CASE EVENT DATE: 201801
